FAERS Safety Report 14848077 (Version 4)
Quarter: 2018Q4

REPORT INFORMATION
  Report Type: Spontaneous
  Country: JP (occurrence: JP)
  Receive Date: 20180504
  Receipt Date: 20181114
  Transmission Date: 20190204
  Serious: Yes (Death, Hospitalization, Other)
  Sender: FDA-Public Use
  Company Number: JP-FERRINGPH-2018FE02188

PATIENT

DRUGS (9)
  1. RANMARK [Concomitant]
     Active Substance: DENOSUMAB
     Dosage: UNK
     Dates: start: 20170706, end: 20180502
  2. RINDERON VG [Concomitant]
     Active Substance: BETAMETHASONE VALERATE\GENTAMICIN SULFATE
     Dosage: UNK
     Dates: start: 20180416, end: 20180423
  3. GONAX [Suspect]
     Active Substance: DEGARELIX
     Indication: PROSTATE CANCER
     Dosage: 80 MG, MONTHLY
     Route: 058
     Dates: start: 20170706, end: 20180409
  4. XYZAL A [Concomitant]
     Dosage: UNK
     Dates: start: 20180416, end: 20180423
  5. DENOTAS [Concomitant]
     Active Substance: CALCIUM CARBONATE\CHOLECALCIFEROL\MAGNESIUM CARBONATE
     Dosage: UNK
     Dates: start: 20170706, end: 20180521
  6. GONAX [Suspect]
     Active Substance: DEGARELIX
     Dosage: 240 MG, ONCE/SINGLE
     Route: 058
     Dates: start: 20170621, end: 20170621
  7. PROSEXOL [Concomitant]
     Active Substance: ETHINYL ESTRADIOL
     Dosage: UNK
     Dates: start: 20180409, end: 20180521
  8. GEBEN [Concomitant]
     Active Substance: SILVER SULFADIAZINE
     Dosage: UNK DOSE ONCE DAILY
     Dates: start: 20180419, end: 20180521
  9. PREDONINE                          /00016203/ [Concomitant]
     Active Substance: PREDNISOLONE SODIUM SUCCINATE
     Dosage: 5 MG, 2 TIMES DAILY
     Dates: start: 20180425, end: 20180521

REACTIONS (4)
  - Injection site ulcer [Fatal]
  - Injection site erythema [Unknown]
  - Inappropriate schedule of product administration [Unknown]
  - Pyoderma gangrenosum [Unknown]

NARRATIVE: CASE EVENT DATE: 20170706
